FAERS Safety Report 7564587-2 (Version None)
Quarter: 2011Q2

REPORT INFORMATION
  Report Type: 
  Country: None (occurrence: None)
  Receive Date: 20110622
  Receipt Date: 20100813
  Transmission Date: 20111010
  Serious: Yes (Death)
  Sender: FDA-Public Use
  Company Number: US-MYLANLABS-2010S1010809

PATIENT
  Age: 58 Year
  Sex: Female

DRUGS (4)
  1. EFFEXOR XR [Concomitant]
  2. CLOZAPINE [Suspect]
     Route: 048
     Dates: start: 20020603, end: 20100507
  3. DIVALPROEX SODIUM [Concomitant]
  4. AMLODIPINE [Concomitant]

REACTIONS (1)
  - DEATH [None]
